FAERS Safety Report 5216762-X (Version None)
Quarter: 2007Q1

REPORT INFORMATION
  Report Type: 
  Country: None (occurrence: None)
  Receive Date: 20070118
  Receipt Date: 20070103
  Transmission Date: 20070707
  Serious: Yes (Other)
  Sender: FDA-Public Use
  Company Number: 2007RR-05067

PATIENT
  Age: 54 Year
  Sex: Male

DRUGS (46)
  1. AMOXICILLIN [Suspect]
     Indication: PNEUMONIA
     Dosage: 1 G, TID, INTRVENOUS
     Route: 042
  2. ACTRAPID (ACTRAPID) [Suspect]
     Indication: PNEUMONIA
     Dosage: INTRAVENOUS
     Route: 042
  3. ALFENTANIL [Suspect]
     Indication: PNEUMONIA
  4. AQUASEPT (AQUASEPT) [Suspect]
     Indication: PNEUMONIA
  5. BACTROBAN (BACTROBAN) [Suspect]
     Indication: PNEUMONIA
  6. CALCIUM CHLORIDE [Suspect]
     Indication: PNEUMONIA
  7. CALCIUM GLUCONATE [Suspect]
     Indication: PNEUMONIA
     Dosage: 10 ML, INTRAVENOUS
     Route: 042
  8. CEFTRIAXONE [Suspect]
     Dosage: 2 G, INTRAVENOUS
     Route: 042
  9. CLEXANE (CLEXANE) [Suspect]
     Indication: PNEUMONIA
     Dosage: 20 MG, QD, SUBCUTANEOUS
     Route: 058
  10. DOBUTAMINE (DOBUTAMINE) [Suspect]
     Indication: PNEUMONIA
  11. FLUCONAZOLE [Suspect]
     Indication: PNEUMONIA
     Dosage: 200 MG, QD, INTRAVENOUS
     Route: 042
  12. FRAGMIN (FRAGMIN) [Suspect]
     Indication: PNEUMONIA
     Dosage: 2500, QD
  13. FUROSEMIDE [Suspect]
     Indication: PNEUMONIA
     Dosage: SEE IMAGE
     Route: 048
  14. HYDROCORTISONE [Suspect]
     Indication: PNEUMONIA
     Dosage: 100MG,
  15. LACTULOSE [Suspect]
     Indication: PNEUMONIA
     Dosage: 10 ML
  16. LANSOPRAZOLE [Suspect]
     Indication: PNEUMONIA
     Dosage: 30 MG
  17. LORAZEPAM [Suspect]
     Indication: PNEUMONIA
  18. MAGNESIUM SULPHATE (MAGNESIUM SULPHATE) [Suspect]
     Indication: PNEUMONIA
  19. NORADRENALINE (NORADRENALNE) [Suspect]
     Indication: PNEUMONIA
  20. OMEPRAZOLE [Suspect]
     Indication: PNEUMONIA
     Dosage: 40 MG, INTRAVENOUS
     Route: 042
  21. ACETAMINOPHEN [Suspect]
     Indication: PNEUMONIA
  22. PIRITON (PIRITON) [Suspect]
     Indication: PNEUMONIA
     Dosage: 10 MG, QID, INTRAVENOUS
     Route: 042
  23. POTASSIUM CHLORIDE [Suspect]
     Indication: PNEUMONIA
  24. POTASSIUM PHOSPHATES [Suspect]
     Indication: PNEUMONIA
  25. PROPOFOL [Suspect]
     Indication: PNEUMONIA
  26. SALBUTAMOL (SALBUTAMOL) [Suspect]
     Indication: PNEUMONIA
  27. SANDO-K (SANDO-K) [Suspect]
     Indication: PNEUMONIA
     Dosage: 2 DF, TID
  28. SILVER SULPHADIAZINE (SILVER SULPHADIAZINE) [Suspect]
     Indication: PNEUMONIA
     Dosage: TOPICAL
     Route: 061
  29. SIMVASTATIN [Suspect]
     Indication: PNEUMONIA
     Dosage: 40 MG, QD
  30. SODIUM BICARBONATE IN PLASTIC CONTAINER [Suspect]
     Indication: PNEUMONIA
     Dosage: 100 MG, INTRAVENOUS
     Route: 042
  31. SODIUM CHLORIDE 0.9% [Suspect]
     Indication: PNEUMONIA
     Dosage: 0.9%, INTRAVENOUS
     Route: 042
  32. THIAMIN (THIAMIN) [Suspect]
     Indication: PNEUMONIA
     Dosage: 100 MG, QD, ORAL
     Route: 048
  33. TINZAPARIN (TINZAPARIN) [Suspect]
     Indication: PNEUMONIA
     Dosage: 3500 UL
  34. VITAMIN K TAB [Suspect]
     Indication: PNEUMONIA
  35. AMOXICILLIN [Concomitant]
  36. ASPIRIN [Concomitant]
  37. ATROVENT [Concomitant]
  38. CIPROFLOXACIN (CIPROLOXACIN) [Concomitant]
  39. CO-AMOXICLAV (AMOXICILLIN TRIHYDRATE) [Concomitant]
  40. ERYTHROMYCIN [Concomitant]
  41. METOCLOPRAMIDE (METOCLOPRAMIDE HYDROCHLORIDE) [Concomitant]
  42. MIDODRINE [Concomitant]
  43. PANTOPRAZOLE SODIUM [Concomitant]
  44. TAZOCIN [Concomitant]
  45. VANCOMYCIN HYDROCHLORIDE [Concomitant]
  46. ZOPICLONE (ZOPICLONE) [Concomitant]

REACTIONS (1)
  - TOXIC EPIDERMAL NECROLYSIS [None]
